FAERS Safety Report 7368601-9 (Version None)
Quarter: 2011Q1

REPORT INFORMATION
  Report Type: 
  Country: None (occurrence: None)
  Receive Date: 20110323
  Receipt Date: 20101201
  Transmission Date: 20110831
  Serious: Yes (Death, Hospitalization)
  Sender: FDA-Public Use
  Company Number: US-BAYER-201030266NA

PATIENT
  Sex: Male

DRUGS (10)
  1. ASPIRIN [Concomitant]
     Dosage: 81 MG (DAILY DOSE), ,
     Dates: start: 20090101
  2. FUROSEMIDE [Concomitant]
     Dosage: 40 MG (DAILY DOSE), ,
     Dates: start: 20090127
  3. METFORMIN [Concomitant]
     Dosage: 2000 MG (DAILY DOSE), ,
     Dates: start: 20060101
  4. HUMULIN N [Concomitant]
     Dosage: 125 U (DAILY DOSE), ,
     Dates: start: 20051101
  5. METOPROLOL TARTRATE [Concomitant]
     Dosage: 200 MG (DAILY DOSE), ,
     Dates: start: 20070112
  6. HYDROCHLOROTHIAZIDE [Concomitant]
     Dosage: 50 MG (DAILY DOSE), ,
     Dates: start: 20070323
  7. LOVASTATIN [Concomitant]
     Dosage: 20 MG (DAILY DOSE), ,
     Dates: start: 20090424
  8. NEXAVAR [Suspect]
     Indication: HEPATIC NEOPLASM MALIGNANT
     Route: 048
     Dates: start: 20100709, end: 20100803
  9. DIOVAN [Concomitant]
     Dosage: 80 MG (DAILY DOSE), ,
     Dates: start: 20070530
  10. FENTANYL [Concomitant]
     Indication: PRODUCT USED FOR UNKNOWN INDICATION
     Dosage: DAILY DOSE 10 MG
     Route: 061
     Dates: start: 20101119, end: 20101101

REACTIONS (3)
  - URINARY TRACT INFECTION [None]
  - SEPSIS [None]
  - NECROTISING FASCIITIS [None]
